FAERS Safety Report 17969979 (Version 2)
Quarter: 2021Q1

REPORT INFORMATION
  Report Type: Spontaneous
  Country: US (occurrence: US)
  Receive Date: 20200701
  Receipt Date: 20210315
  Transmission Date: 20210419
  Serious: Yes (Death)
  Sender: FDA-Public Use
  Company Number: US-PURDUE-USA-2020-0153450

PATIENT
  Age: 34 Year
  Sex: Female

DRUGS (4)
  1. OXYCONTIN [Suspect]
     Active Substance: OXYCODONE HYDROCHLORIDE
     Indication: PRODUCT USED FOR UNKNOWN INDICATION
     Dosage: UNKNOWN
     Route: 048
  2. HYDROCODONE BITARTRATE (SIMILAR TO NDA 206627) [Suspect]
     Active Substance: HYDROCODONE BITARTRATE
     Indication: BACK PAIN
     Dosage: 2.0 UNK
     Route: 048
     Dates: start: 20081108
  3. CARISOPRODOL. [Suspect]
     Active Substance: CARISOPRODOL
     Indication: BACK PAIN
     Dosage: 4.6 MG, UNK
     Route: 048
     Dates: start: 20081108
  4. DIAZEPAM. [Suspect]
     Active Substance: DIAZEPAM
     Indication: BACK PAIN
     Dosage: 2.0, UNK
     Route: 048
     Dates: start: 20081108

REACTIONS (2)
  - Drug diversion [Unknown]
  - Product administration error [Fatal]

NARRATIVE: CASE EVENT DATE: 2008
